FAERS Safety Report 10444520 (Version 2)
Quarter: 2014Q3

REPORT INFORMATION
  Report Type: Report from Study
  Country: CA (occurrence: CA)
  Receive Date: 20140910
  Receipt Date: 20140917
  Transmission Date: 20150326
  Serious: Yes (Other)
  Sender: FDA-Public Use
  Company Number: CA-ABBVIE-14K-028-1280086-00

PATIENT
  Sex: Female

DRUGS (1)
  1. HUMIRA [Suspect]
     Active Substance: ADALIMUMAB
     Indication: CROHN^S DISEASE
     Route: 058
     Dates: start: 20090817, end: 20140628

REACTIONS (3)
  - Drug ineffective [Unknown]
  - Abdominal adhesions [Not Recovered/Not Resolved]
  - Intestinal perforation [Not Recovered/Not Resolved]
